FAERS Safety Report 11791118 (Version 1)
Quarter: 2015Q4

REPORT INFORMATION
  Report Type: Spontaneous
  Country: US (occurrence: US)
  Receive Date: 20151201
  Receipt Date: 20151201
  Transmission Date: 20160305
  Serious: Yes (Other)
  Sender: FDA-Public Use
  Company Number: US-BAYER-2015-473963

PATIENT
  Age: 67 Year
  Sex: Male

DRUGS (7)
  1. DIVALPROEX [Interacting]
     Active Substance: DIVALPROEX SODIUM
     Indication: SCHIZOAFFECTIVE DISORDER BIPOLAR TYPE
  2. TRAZODONE [Concomitant]
     Active Substance: TRAZODONE HYDROCHLORIDE
     Indication: SCHIZOAFFECTIVE DISORDER BIPOLAR TYPE
  3. BUPROPION. [Concomitant]
     Active Substance: BUPROPION
     Indication: SCHIZOAFFECTIVE DISORDER BIPOLAR TYPE
  4. ACETYLSALICYLIC ACID (} 100 MG) [Suspect]
     Active Substance: ASPIRIN
     Dosage: UNK
     Dates: start: 201507
  5. ZIPRASIDONE. [Concomitant]
     Active Substance: ZIPRASIDONE
     Indication: SCHIZOAFFECTIVE DISORDER BIPOLAR TYPE
  6. AMANTADINE [Concomitant]
     Active Substance: AMANTADINE
     Indication: SCHIZOAFFECTIVE DISORDER BIPOLAR TYPE
     Dosage: 100 MG, TID
     Dates: start: 201501
  7. AMANTADINE [Concomitant]
     Active Substance: AMANTADINE
     Indication: TREMOR

REACTIONS (5)
  - Toxicity to various agents [None]
  - Confusional state [Recovering/Resolving]
  - Disorientation [Recovering/Resolving]
  - Labelled drug-drug interaction medication error [None]
  - Affect lability [Recovering/Resolving]

NARRATIVE: CASE EVENT DATE: 2015
